FAERS Safety Report 8493079-1 (Version None)
Quarter: 2012Q3

REPORT INFORMATION
  Report Type: 
  Country: None (occurrence: None)
  Receive Date: 20120706
  Receipt Date: 20120625
  Transmission Date: 20120928
  Serious: Yes (Other)
  Sender: FDA-Public Use
  Company Number: US-ACTELION-A-NJ2012-66697

PATIENT

DRUGS (5)
  1. CARBAMAZEPINE [Interacting]
  2. TRACLEER [Suspect]
     Indication: PULMONARY HYPERTENSION
     Dosage: UNK
     Route: 048
     Dates: start: 20120215
  3. TOPAMAX [Interacting]
  4. COUMADIN [Concomitant]
  5. TRACLEER [Interacting]
     Dosage: DOSE DECREASED
     Route: 048

REACTIONS (3)
  - CONVULSION [None]
  - CONCOMITANT DISEASE AGGRAVATED [None]
  - DRUG INTERACTION [None]
